FAERS Safety Report 5958863-4 (Version None)
Quarter: 2008Q4

REPORT INFORMATION
  Report Type: 
  Country: None (occurrence: None)
  Receive Date: 20081119
  Receipt Date: 20081110
  Transmission Date: 20090506
  Serious: Yes (Other)
  Sender: FDA-Public Use
  Company Number: US-ALLERGAN-0814323US

PATIENT
  Age: 87 Year
  Sex: Female

DRUGS (1)
  1. COMBIGAN [Suspect]
     Indication: GLAUCOMA
     Route: 047

REACTIONS (3)
  - CEREBROVASCULAR ACCIDENT [None]
  - RESPIRATORY RATE DECREASED [None]
  - VISION BLURRED [None]
